FAERS Safety Report 9803217 (Version 5)
Quarter: 2014Q1

REPORT INFORMATION
  Report Type: Spontaneous
  Country: TR (occurrence: TR)
  Receive Date: 20140108
  Receipt Date: 20140227
  Transmission Date: 20141002
  Serious: Yes (Other)
  Sender: FDA-Public Use
  Company Number: PHHY2014TR000618

PATIENT
  Age: 42 Year
  Sex: Male

DRUGS (1)
  1. SEBIVO [Suspect]
     Indication: HEPATITIS B
     Dosage: 600 MG, DAILY
     Route: 048

REACTIONS (7)
  - Splenomegaly [Recovered/Resolved]
  - Loss of consciousness [Not Recovered/Not Resolved]
  - Hepatic cirrhosis [Unknown]
  - Asthenia [Not Recovered/Not Resolved]
  - Dry mouth [Not Recovered/Not Resolved]
  - Gastritis [Unknown]
  - Suspected counterfeit product [Unknown]
